FAERS Safety Report 8309622-9 (Version None)
Quarter: 2012Q2

REPORT INFORMATION
  Report Type: 
  Country: None (occurrence: None)
  Receive Date: 20120423
  Receipt Date: 20120419
  Transmission Date: 20120825
  Serious: Yes (Death)
  Sender: FDA-Public Use
  Company Number: ADR-2011-11288

PATIENT
  Age: 53 Year
  Sex: Female

DRUGS (5)
  1. KETAMINE HCL [Concomitant]
  2. DILAUDID [Concomitant]
  3. CLONIDINE [Concomitant]
  4. BUPIVACAINE HCL [Concomitant]
  5. LIORESAL [Suspect]
     Indication: MUSCLE SPASTICITY
     Dosage: 1,209.4 MCG, DAILU, INT
     Route: 037

REACTIONS (1)
  - BREAST CANCER [None]
